FAERS Safety Report 6978287-0 (Version None)
Quarter: 2010Q3

REPORT INFORMATION
  Report Type: 
  Country: None (occurrence: None)
  Receive Date: 20100913
  Receipt Date: 20100907
  Transmission Date: 20110219
  Serious: Yes (Hospitalization, Other)
  Sender: FDA-Public Use
  Company Number: GR-BAXTER-2010BH023199

PATIENT
  Age: 48 Year
  Sex: Female
  Weight: 74 kg

DRUGS (7)
  1. CYCLOPHOSPHAMIDE [Suspect]
     Indication: BREAST CANCER
     Route: 042
     Dates: start: 20060324, end: 20060420
  2. METHOTREXATE [Suspect]
     Indication: BREAST CANCER
     Route: 042
     Dates: start: 20060324, end: 20060420
  3. FLUOROURACIL [Suspect]
     Indication: BREAST CANCER
     Route: 042
     Dates: start: 20060324, end: 20060420
  4. NEULASTA [Concomitant]
     Indication: NEUTROPENIA
     Route: 042
     Dates: start: 20060210, end: 20060420
  5. ZOFRON [Concomitant]
     Indication: PREMEDICATION
     Route: 048
     Dates: start: 20060210, end: 20060707
  6. PRIMPERAN TAB [Concomitant]
     Indication: PREMEDICATION
     Route: 048
     Dates: start: 20060210, end: 20060707
  7. LORAZEPAM [Concomitant]
     Indication: DEPRESSION
     Route: 048
     Dates: start: 20060210, end: 20060707

REACTIONS (2)
  - NEUTROPENIA [None]
  - URINARY TRACT INFECTION [None]
